FAERS Safety Report 8304253-9 (Version None)
Quarter: 2012Q2

REPORT INFORMATION
  Report Type: 
  Country: None (occurrence: None)
  Receive Date: 20120423
  Receipt Date: 20120418
  Transmission Date: 20120825
  Serious: Yes (Other)
  Sender: FDA-Public Use
  Company Number: PHHY2012CN032816

PATIENT
  Age: 57 Year
  Sex: Female

DRUGS (2)
  1. PHENYTOIN [Suspect]
     Indication: EPILEPSY
     Dosage: 0.3 G, DAILY
  2. CARBAMAZEPINE [Suspect]
     Indication: EPILEPSY
     Dosage: 0.6 G, DAILY

REACTIONS (5)
  - PEMPHIGUS [None]
  - ACANTHOLYSIS [None]
  - BLISTER [None]
  - MOUTH ULCERATION [None]
  - SKIN LESION [None]
